FAERS Safety Report 4862887-8 (Version None)
Quarter: 2005Q4

REPORT INFORMATION
  Report Type: 
  Country: None (occurrence: None)
  Receive Date: 20051129
  Receipt Date: 20050920
  Transmission Date: 20060501
  Serious: No
  Sender: FDA-Public Use
  Company Number: WAES 0509USA02822

PATIENT
  Age: 71 Year
  Sex: Male

DRUGS (8)
  1. ZETIA [Suspect]
     Indication: HYPERLIPIDAEMIA
     Dosage: 10 MG/DAILY/PO
     Route: 048
     Dates: start: 20050418, end: 20050617
  2. PRINIVIL [Concomitant]
  3. CYCLOBENZAPRINE HCL [Concomitant]
  4. DOCUSATE SODIUM [Concomitant]
  5. HYDROCODONE HYDROCHLORIDE [Concomitant]
  6. METOPROLOL [Concomitant]
  7. OMEPRAZOLE [Concomitant]
  8. SILDENAFIL CITRATE [Concomitant]

REACTIONS (2)
  - DIZZINESS [None]
  - MYALGIA [None]
